FAERS Safety Report 8073811-1 (Version None)
Quarter: 2012Q1

REPORT INFORMATION
  Report Type: 
  Country: None (occurrence: None)
  Receive Date: 20120126
  Receipt Date: 20120120
  Transmission Date: 20120608
  Serious: Yes (Other)
  Sender: FDA-Public Use
  Company Number: US-BAYER-2012-007430

PATIENT
  Age: 77 Year
  Sex: Male
  Weight: 68 kg

DRUGS (22)
  1. GLUCOSAMINE HYDROCHLORIDE [Concomitant]
  2. LEVEMIR [Concomitant]
  3. LEVOTHYROXINE SODIUM [Concomitant]
  4. ATENOLOL [Concomitant]
  5. ASPIRIN [Suspect]
     Dosage: 325 MG
  6. FOLIC ACID [Concomitant]
  7. ASCORBIC ACID [Concomitant]
  8. VITAMIN D [Concomitant]
  9. VITAMIN E [Concomitant]
  10. PLAVIX [Suspect]
     Indication: CEREBROVASCULAR ACCIDENT
     Dosage: 75 MG
     Route: 048
     Dates: start: 20111126
  11. FISH OIL [Concomitant]
  12. HUMALOG [Concomitant]
  13. NITROSTAT [Concomitant]
  14. COZAAR [Concomitant]
  15. CALCIUM +VIT D [Concomitant]
  16. ATORVASTATIN [Concomitant]
  17. LOSARTAN POTASSIUM [Concomitant]
  18. CHONDROITIN SULFATE [Concomitant]
  19. FORTEO [Concomitant]
     Dosage: UNK
     Dates: start: 20101129
  20. METFORMIN HCL [Concomitant]
  21. MULTI-VITAMINS [Concomitant]
  22. VITAMIN B COMPLEX CAP [Concomitant]

REACTIONS (1)
  - SKIN HAEMORRHAGE [None]
